FAERS Safety Report 22859395 (Version 6)
Quarter: 2023Q4

REPORT INFORMATION
  Report Type: Spontaneous
  Country: US (occurrence: US)
  Receive Date: 20230824
  Receipt Date: 20231221
  Transmission Date: 20240110
  Serious: Yes (Other)
  Sender: FDA-Public Use
  Company Number: US-BRISTOL-MYERS SQUIBB COMPANY-2023-119158

PATIENT
  Age: 65 Year
  Sex: Female

DRUGS (2)
  1. LENALIDOMIDE [Suspect]
     Active Substance: LENALIDOMIDE
     Indication: Plasma cell myeloma
     Dosage: TAKE 1 CAPSULE BY MOUTH ONCE DAILY FOR 21 DAYS THEN 7 DAYS OFF
     Route: 048
     Dates: start: 20230821
  2. LENALIDOMIDE [Suspect]
     Active Substance: LENALIDOMIDE
     Indication: Vulval ulceration

REACTIONS (12)
  - Bone pain [Not Recovered/Not Resolved]
  - Mass [Not Recovered/Not Resolved]
  - Dyspnoea [Not Recovered/Not Resolved]
  - Constipation [Not Recovered/Not Resolved]
  - Diarrhoea [Unknown]
  - Somnolence [Unknown]
  - Bone neoplasm [Recovered/Resolved]
  - Eye infection [Recovered/Resolved]
  - Neuropathy peripheral [Unknown]
  - Eye discharge [Unknown]
  - Ocular neoplasm [Unknown]
  - Bone lesion [Not Recovered/Not Resolved]
